FAERS Safety Report 8315551-7 (Version None)
Quarter: 2012Q2

REPORT INFORMATION
  Report Type: 
  Country: None (occurrence: None)
  Receive Date: 20120426
  Receipt Date: 20120423
  Transmission Date: 20120825
  Serious: Yes (Other)
  Sender: FDA-Public Use
  Company Number: US-PFIZER INC-2012092303

PATIENT
  Sex: Female

DRUGS (2)
  1. LYRICA [Suspect]
     Indication: FIBROMYALGIA
     Dosage: UNK
  2. WELLBUTRIN [Concomitant]
     Indication: DEPRESSION
     Dosage: UNK, AS NEEDED

REACTIONS (14)
  - CLAUSTROPHOBIA [None]
  - PANIC DISORDER [None]
  - THINKING ABNORMAL [None]
  - SUICIDAL IDEATION [None]
  - URINARY INCONTINENCE [None]
  - PSYCHOTIC DISORDER [None]
  - ANXIETY [None]
  - HYPERHIDROSIS [None]
  - CONVERSION DISORDER [None]
  - FEAR [None]
  - NIGHTMARE [None]
  - FEELING ABNORMAL [None]
  - COGNITIVE DISORDER [None]
  - COLD SWEAT [None]
